FAERS Safety Report 18345667 (Version 1)
Quarter: 2020Q4

REPORT INFORMATION
  Report Type: Spontaneous
  Country: AU (occurrence: AU)
  Receive Date: 20201005
  Receipt Date: 20201005
  Transmission Date: 20210114
  Serious: Yes (Hospitalization, Other)
  Sender: FDA-Public Use
  Company Number: AU-PURACAP PHARMACEUTICAL LLC-2020EPC00302

PATIENT
  Age: 32 Year
  Sex: Female

DRUGS (2)
  1. ACETAMINOPHEN. [Suspect]
     Active Substance: ACETAMINOPHEN
     Indication: PAIN
     Dosage: 4 ^MODIFIED-RELEASE^ TABLETS; EVERY 3-4 HOURS
     Route: 065
  2. ACETAMINOPHEN. [Suspect]
     Active Substance: ACETAMINOPHEN
     Dosage: ^96 X 665 MG MODIFIED-RELEASE ACETAMINOPHEN CAPLETS^
     Route: 065

REACTIONS (2)
  - Overdose [Recovered/Resolved]
  - Metabolic acidosis [Recovered/Resolved]
